FAERS Safety Report 23991210 (Version 2)
Quarter: 2024Q2

REPORT INFORMATION
  Report Type: Spontaneous
  Country: CA (occurrence: CA)
  Receive Date: 20240619
  Receipt Date: 20240628
  Transmission Date: 20240715
  Serious: Yes (Other)
  Sender: FDA-Public Use
  Company Number: CA-PFIZER INC-PV202400079533

PATIENT
  Age: 63 Year
  Sex: Female

DRUGS (1)
  1. IBRANCE [Suspect]
     Active Substance: PALBOCICLIB
     Indication: Breast cancer metastatic
     Dosage: 125 MG, CYCLIC (CURRENT CYCLE) OD (DAILY) FOR 21 DAYS THEN 7 DAYS OFF
     Dates: start: 20240416

REACTIONS (2)
  - Cytopenia [Unknown]
  - Nausea [Unknown]

NARRATIVE: CASE EVENT DATE: 20240101
